FAERS Safety Report 6156108-6 (Version None)
Quarter: 2009Q2

REPORT INFORMATION
  Report Type: 
  Country: None (occurrence: None)
  Receive Date: 20090413
  Receipt Date: 20090413
  Transmission Date: 20091009
  Serious: No
  Sender: FDA-Public Use
  Company Number: None

PATIENT
  Age: 43 Year
  Sex: Female
  Weight: 65.7716 kg

DRUGS (1)
  1. CYMBALTA [Suspect]
     Indication: FIBROMYALGIA
     Dosage: 60MGS 2 XS PER DAY PO
     Route: 048
     Dates: start: 20090107, end: 20090402

REACTIONS (2)
  - FEELING ABNORMAL [None]
  - MALAISE [None]
